FAERS Safety Report 9154493 (Version 1)
Quarter: 2013Q1

REPORT INFORMATION
  Report Type: Spontaneous
  Country: US (occurrence: None)
  Receive Date: 20130306
  Receipt Date: 20130306
  Transmission Date: 20140127
  Serious: No
  Sender: FDA-Public Use
  Company Number: None

PATIENT
  Age: 49 Year
  Sex: Male
  Weight: 65.77 kg

DRUGS (1)
  1. CLARITIN D-12 120MG CLARITIN [Suspect]

REACTIONS (2)
  - Myalgia [None]
  - Back pain [None]
